FAERS Safety Report 6293330-2 (Version None)
Quarter: 2009Q3

REPORT INFORMATION
  Report Type: 
  Country: None (occurrence: None)
  Receive Date: 20090731
  Receipt Date: 20090723
  Transmission Date: 20100115
  Serious: Yes (Hospitalization)
  Sender: FDA-Public Use
  Company Number: PHHY2009FR30942

PATIENT
  Sex: Female

DRUGS (3)
  1. TEGRETOL [Suspect]
     Dosage: 1 DF, BID
  2. TRIPHASIL-21 [Suspect]
     Dosage: UNK
     Dates: start: 19970101, end: 20090130
  3. ZYPREXA [Suspect]
     Dosage: UNK
     Dates: start: 20081201, end: 20090130

REACTIONS (2)
  - DEEP VEIN THROMBOSIS [None]
  - MOBILITY DECREASED [None]
